FAERS Safety Report 9310499 (Version 2)
Quarter: 2013Q3

REPORT INFORMATION
  Report Type: Spontaneous
  Country: US (occurrence: US)
  Receive Date: 20130527
  Receipt Date: 20130730
  Transmission Date: 20140515
  Serious: Yes (Death, Hospitalization)
  Sender: FDA-Public Use
  Company Number: US-PFIZER INC-2013159452

PATIENT
  Age: 63 Year
  Sex: Male
  Weight: 78.01 kg

DRUGS (3)
  1. RAPAMUNE [Suspect]
     Indication: PROPHYLAXIS AGAINST TRANSPLANT REJECTION
     Dosage: 1 MG, DAILY
     Dates: start: 20120621
  2. NOVOLOG [Concomitant]
     Indication: DIABETES MELLITUS
     Dosage: 6 IU, 3X/DAY
  3. LANTUS [Concomitant]
     Indication: DIABETES MELLITUS
     Dosage: 20 IU AT NIGHT , 1X/DAY

REACTIONS (2)
  - Lip neoplasm malignant stage unspecified [Fatal]
  - Off label use [Unknown]
